FAERS Safety Report 5265057-7 (Version None)
Quarter: 2007Q1

REPORT INFORMATION
  Report Type: 
  Country: None (occurrence: None)
  Receive Date: 20061122
  Receipt Date: 20060814
  Transmission Date: 20070707
  Serious: Yes (Hospitalization)
  Sender: FDA-Public Use
  Company Number: 2006MP000958

PATIENT
  Age: 58 Year
  Sex: Female
  Weight: 77 kg

DRUGS (10)
  1. GLIADEL [Suspect]
     Indication: GLIOBLASTOMA MULTIFORME
     Dosage: X1; ICER
     Dates: start: 20060711
  2. 06-BENZYLGUANINE [Suspect]
     Dosage: SEE IMAGE
     Route: 042
     Dates: start: 20060711, end: 20060715
  3. LEXAPRO [Concomitant]
  4. PROTONIX [Concomitant]
  5. SODIUM CHLORIDE [Concomitant]
  6. DECADRON [Concomitant]
  7. TYLENOL [Concomitant]
  8. ATIVAN [Concomitant]
  9. VALPROIC ACID [Concomitant]
  10. INSULIN [Concomitant]

REACTIONS (5)
  - DEEP VEIN THROMBOSIS [None]
  - EXTRADURAL HAEMATOMA [None]
  - INTRACRANIAL HYPOTENSION [None]
  - WOUND [None]
  - WOUND INFECTION [None]
